FAERS Safety Report 5048851-7 (Version None)
Quarter: 2006Q3

REPORT INFORMATION
  Report Type: 
  Country: None (occurrence: None)
  Receive Date: 20060712
  Receipt Date: 20060630
  Transmission Date: 20061208
  Serious: Yes (Hospitalization)
  Sender: FDA-Public Use
  Company Number: PK-AVENTIS-200616955GDDC

PATIENT
  Sex: Male
  Weight: 85 kg

DRUGS (1)
  1. METRONIDAZOLE [Suspect]
     Indication: ENTERITIS
     Route: 042
     Dates: start: 20060629, end: 20060629

REACTIONS (6)
  - CHILLS [None]
  - COLD SWEAT [None]
  - CYANOSIS [None]
  - OXYGEN SATURATION DECREASED [None]
  - PYREXIA [None]
  - VOMITING [None]
